FAERS Safety Report 17209315 (Version 1)
Quarter: 2019Q4

REPORT INFORMATION
  Report Type: Report from Study
  Country: PT (occurrence: PT)
  Receive Date: 20191227
  Receipt Date: 20191227
  Transmission Date: 20200122
  Serious: Yes (Hospitalization, Other)
  Sender: FDA-Public Use
  Company Number: PT-MYLANLABS-2019M1128012

PATIENT
  Sex: Female
  Weight: 57 kg

DRUGS (6)
  1. TAXOTERE [Suspect]
     Active Substance: DOCETAXEL
     Indication: BREAST CANCER
     Dosage: MOST RECENT DOSE PRIOR TO THE EVENT: 06/JUN/2017, 04/JUL/2017 AND 18/JUL/2017
     Route: 042
     Dates: start: 20170606
  2. PERTUZUMAB. [Suspect]
     Active Substance: PERTUZUMAB
     Indication: BREAST CANCER
     Dosage: MOST RECENT DOSE PRIOR TO THE EVENT: 06/JUN/2017 AND 06/APR/2018
     Route: 042
     Dates: start: 20170606
  3. TRASTUZUMAB. [Suspect]
     Active Substance: TRASTUZUMAB
     Indication: BREAST CANCER
     Dosage: MOST RECENT DOSE PRIOR TO THE EVENT: 06/JUN/2017 AND 06/APR/2018
     Route: 042
     Dates: start: 20170606
  4. TRASTUZUMAB. [Suspect]
     Active Substance: TRASTUZUMAB
     Dosage: MOST RECENT DOSE PRIOR TO THE EVENT 17/MAY/2019 AND 28/JAN/2019
     Route: 042
     Dates: start: 20180806
  5. PARACETAMOL [Concomitant]
     Active Substance: ACETAMINOPHEN
     Dosage: UNK
     Route: 065
     Dates: start: 20170704
  6. BISOPROLOL [Concomitant]
     Active Substance: BISOPROLOL
     Dosage: UNK
     Route: 065

REACTIONS (3)
  - Neutropenia [Recovering/Resolving]
  - Neutrophilia [Recovered/Resolved]
  - Febrile neutropenia [Recovered/Resolved]

NARRATIVE: CASE EVENT DATE: 20170704
